FAERS Safety Report 23024198 (Version 2)
Quarter: 2023Q4

REPORT INFORMATION
  Report Type: Spontaneous
  Country: JP (occurrence: JP)
  Receive Date: 20231004
  Receipt Date: 20231129
  Transmission Date: 20240110
  Serious: Yes (Other)
  Sender: FDA-Public Use
  Company Number: JP-TAKEDA-2023TJP013026

PATIENT
  Sex: Male

DRUGS (3)
  1. ADYNOVATE [Suspect]
     Active Substance: ANTIHEMOPHILIC FACTOR, HUMAN RECOMBINANT
     Indication: Haemophilia
     Dosage: 3000 INTERNATIONAL UNIT, 2/WEEK
     Route: 042
  2. ADYNOVATE [Suspect]
     Active Substance: ANTIHEMOPHILIC FACTOR, HUMAN RECOMBINANT
     Indication: Haemophilia
     Dosage: 3000 INTERNATIONAL UNIT, 2/WEEK
     Route: 042
  3. ADYNOVATE [Suspect]
     Active Substance: ANTIHEMOPHILIC FACTOR, HUMAN RECOMBINANT
     Indication: Haemophilia
     Dosage: 3000 INTERNATIONAL UNIT, 2/WEEK
     Route: 042

REACTIONS (1)
  - Renal cancer [Unknown]
